FAERS Safety Report 22155324 (Version 1)
Quarter: 2023Q1

REPORT INFORMATION
  Report Type: Spontaneous
  Country: US (occurrence: None)
  Receive Date: 20230329
  Receipt Date: 20230329
  Transmission Date: 20230418
  Serious: Yes (Other)
  Sender: FDA-Public Use
  Company Number: None

PATIENT
  Age: 69 Year
  Sex: Female
  Weight: 49.5 kg

DRUGS (18)
  1. LEVOTHYROXINE [Suspect]
     Active Substance: LEVOTHYROXINE
     Indication: Hypothyroidism
     Dates: start: 20210303, end: 20220303
  2. LIOTHYRONINE [Suspect]
     Active Substance: LIOTHYRONINE
  3. ARMOUR THYROID [Suspect]
     Active Substance: THYROID, PORCINE
  4. NP THYROID [Suspect]
     Active Substance: LEVOTHYROXINE\LIOTHYRONINE
  5. PRILOSEC [Suspect]
     Active Substance: OMEPRAZOLE MAGNESIUM
  6. PROGESTERONE [Concomitant]
     Active Substance: PROGESTERONE
  7. hormone pellets [Concomitant]
  8. CALCIUM\CHOLECALCIFEROL [Concomitant]
     Active Substance: CALCIUM\CHOLECALCIFEROL
  9. liquid vitamins [Concomitant]
  10. TYLENOL [Concomitant]
     Active Substance: ACETAMINOPHEN
  11. CHROMIUM PICOLINATE [Concomitant]
     Active Substance: CHROMIUM PICOLINATE
  12. UNSPECIFIED INGREDIENT [Concomitant]
     Active Substance: UNSPECIFIED INGREDIENT
  13. PROBIOTICS NOS [Concomitant]
     Active Substance: PROBIOTICS NOS
  14. SIMETHICONE (DIMETHICONE) [Concomitant]
     Active Substance: DIMETHICONE
  15. PEPCID [Concomitant]
     Active Substance: FAMOTIDINE
  16. VITAMIN B12 [Concomitant]
     Active Substance: CYANOCOBALAMIN
  17. ALOE VERA LEAF [Concomitant]
     Active Substance: ALOE VERA LEAF
  18. HYPERICUM PERFORATUM WHOLE [Concomitant]
     Active Substance: HYPERICUM PERFORATUM WHOLE

REACTIONS (7)
  - Nausea [None]
  - Product substitution issue [None]
  - Recalled product administered [None]
  - Vomiting [None]
  - Weight decreased [None]
  - Palpitations [None]
  - Drug ineffective [None]

NARRATIVE: CASE EVENT DATE: 20210303
